FAERS Safety Report 8050255-X (Version None)
Quarter: 2012Q1

REPORT INFORMATION
  Report Type: 
  Country: None (occurrence: None)
  Receive Date: 20120117
  Receipt Date: 20120110
  Transmission Date: 20120608
  Serious: Yes (Other)
  Sender: FDA-Public Use
  Company Number: BR-PFIZER INC-2012007907

PATIENT
  Age: 55 Year
  Sex: Female

DRUGS (1)
  1. XALATAN [Suspect]
     Dosage: 3 UG, 1X/DAY (1 DROP EACH EYE, 1X/DAY)
     Route: 047
     Dates: start: 20080101

REACTIONS (2)
  - GLAUCOMA [None]
  - BLOOD PRESSURE INCREASED [None]
